FAERS Safety Report 16318251 (Version 1)
Quarter: 2019Q2

REPORT INFORMATION
  Report Type: Spontaneous
  Country: US (occurrence: US)
  Receive Date: 20190516
  Receipt Date: 20190516
  Transmission Date: 20190711
  Serious: Yes (Hospitalization)
  Sender: FDA-Public Use
  Company Number: US-SUN PHARMACEUTICAL INDUSTRIES LTD-2019R1-207897

PATIENT
  Age: 77 Year
  Sex: Female

DRUGS (1)
  1. LORAZEPAM. [Suspect]
     Active Substance: LORAZEPAM
     Indication: INSOMNIA
     Dosage: 1 MILLIGRAM AT NIGHTTIME
     Route: 065

REACTIONS (4)
  - Major depression [Recovered/Resolved]
  - Catatonia [Recovered/Resolved]
  - Withdrawal syndrome [Recovered/Resolved]
  - Delusion [Recovered/Resolved]
